FAERS Safety Report 25367048 (Version 1)
Quarter: 2025Q2

REPORT INFORMATION
  Report Type: Spontaneous
  Country: RU (occurrence: RU)
  Receive Date: 20250528
  Receipt Date: 20250528
  Transmission Date: 20250717
  Serious: Yes (Hospitalization)
  Sender: ORGANON
  Company Number: RU-ORGANON-O2505RUS003056

PATIENT
  Sex: Female

DRUGS (1)
  1. ETONOGESTREL [Suspect]
     Active Substance: ETONOGESTREL
     Route: 059
     Dates: start: 2024

REACTIONS (4)
  - Alcohol abuse [Recovering/Resolving]
  - Amenorrhoea [Recovered/Resolved]
  - Vaginal haemorrhage [Unknown]
  - Uterine leiomyoma [Not Recovered/Not Resolved]
